FAERS Safety Report 19960414 (Version 1)
Quarter: 2021Q4

REPORT INFORMATION
  Report Type: Spontaneous
  Country: US (occurrence: US)
  Receive Date: 20211015
  Receipt Date: 20211015
  Transmission Date: 20220303
  Serious: No
  Sender: FDA-Public Use
  Company Number: US-COLLEGIUM PHARMACEUTICAL, INC.-2021CGM00136

PATIENT
  Age: 46 Year
  Sex: Female

DRUGS (3)
  1. NUCYNTA ER [Suspect]
     Active Substance: TAPENTADOL HYDROCHLORIDE
     Indication: Ill-defined disorder
     Dosage: 100 MG, 2X/DAY (EVERY 12 HOURS)
     Route: 048
     Dates: start: 201910
  2. LYRICA [Suspect]
     Active Substance: PREGABALIN
  3. GABAPENTIN [Suspect]
     Active Substance: GABAPENTIN
     Dosage: UNK

REACTIONS (1)
  - Migraine [Recovered/Resolved]

NARRATIVE: CASE EVENT DATE: 20191001
